FAERS Safety Report 6287397-5 (Version None)
Quarter: 2009Q3

REPORT INFORMATION
  Report Type: 
  Country: None (occurrence: None)
  Receive Date: 20090728
  Receipt Date: 20090714
  Transmission Date: 20100115
  Serious: Yes (Death, Hospitalization, Other)
  Sender: FDA-Public Use
  Company Number: GB-BAUSCH-2009BL003570

PATIENT
  Age: 57 Year
  Sex: Male

DRUGS (10)
  1. DEXAMETHASONE [Suspect]
     Indication: WALDENSTROM'S MACROGLOBULINAEMIA
     Route: 048
     Dates: start: 20040201
  2. FLUDARABINE PHOSPHATE [Suspect]
     Indication: WALDENSTROM'S MACROGLOBULINAEMIA
     Route: 048
     Dates: start: 20030601, end: 20030601
  3. FLUDARABINE PHOSPHATE [Suspect]
     Route: 048
     Dates: start: 20031101, end: 20031101
  4. CYCLOPHOSPHAMIDE [Suspect]
     Indication: WALDENSTROM'S MACROGLOBULINAEMIA
     Route: 048
     Dates: start: 20031101, end: 20031101
  5. THALIDOMIDE [Suspect]
     Indication: WALDENSTROM'S MACROGLOBULINAEMIA
     Route: 048
     Dates: start: 20040201
  6. THALIDOMIDE [Suspect]
     Route: 048
     Dates: start: 20040201
  7. ACYCLOVIR [Suspect]
     Indication: WALDENSTROM'S MACROGLOBULINAEMIA
     Route: 048
     Dates: start: 20030601
  8. COTRIM [Suspect]
     Indication: WALDENSTROM'S MACROGLOBULINAEMIA
     Route: 048
     Dates: start: 20030601
  9. RITUXIMAB [Suspect]
     Indication: WALDENSTROM'S MACROGLOBULINAEMIA
     Dates: start: 20031101, end: 20031101
  10. DESFERIN [Concomitant]
     Indication: SERUM FERRITIN INCREASED
     Route: 058
     Dates: start: 20040101

REACTIONS (3)
  - CEREBRAL TOXOPLASMOSIS [None]
  - ECTHYMA [None]
  - MOLLUSCUM CONTAGIOSUM [None]
